FAERS Safety Report 4387423-4 (Version None)
Quarter: 2004Q2

REPORT INFORMATION
  Report Type: 
  Country: None (occurrence: None)
  Receive Date: 20040630
  Receipt Date: 20040427
  Transmission Date: 20050107
  Serious: Yes (Other)
  Sender: FDA-Public Use
  Company Number: US-GLAXOSMITHKLINE-A0508626A

PATIENT
  Age: 54 Year
  Sex: Female
  Weight: 63.6 kg

DRUGS (4)
  1. ADVAIR HFA [Suspect]
     Indication: ASTHMA
     Route: 055
     Dates: start: 20031201, end: 20040201
  2. ENBREL [Suspect]
  3. CELEBREX [Concomitant]
  4. SYNTHROID [Concomitant]

REACTIONS (4)
  - DYSGEUSIA [None]
  - GLOSSODYNIA [None]
  - ORAL PAIN [None]
  - TONGUE DISORDER [None]
